FAERS Safety Report 17687743 (Version 1)
Quarter: 2020Q2

REPORT INFORMATION
  Report Type: Spontaneous
  Country: RO (occurrence: RO)
  Receive Date: 20200421
  Receipt Date: 20200421
  Transmission Date: 20200714
  Serious: Yes (Other)
  Sender: FDA-Public Use
  Company Number: RO-AUROBINDO-AUR-APL-2020-020176

PATIENT
  Age: 34 Year
  Sex: Male

DRUGS (4)
  1. SOTALOL. [Suspect]
     Active Substance: SOTALOL
     Indication: VENTRICULAR TACHYARRHYTHMIA
     Dosage: UNK
     Route: 065
  2. BISOPROLOL [Suspect]
     Active Substance: BISOPROLOL
     Indication: VENTRICULAR TACHYARRHYTHMIA
     Dosage: UNK
     Route: 065
  3. PROPAFENONE. [Suspect]
     Active Substance: PROPAFENONE
     Indication: VENTRICULAR TACHYARRHYTHMIA
     Dosage: UNK
     Route: 065
  4. LIDOCAINE. [Concomitant]
     Active Substance: LIDOCAINE
     Indication: PRODUCT USED FOR UNKNOWN INDICATION
     Dosage: UNK
     Route: 042

REACTIONS (2)
  - Drug ineffective [Unknown]
  - Product use in unapproved indication [Unknown]
